FAERS Safety Report 23363732 (Version 1)
Quarter: 2024Q1

REPORT INFORMATION
  Report Type: Spontaneous
  Country: BR (occurrence: BR)
  Receive Date: 20240103
  Receipt Date: 20240103
  Transmission Date: 20240410
  Serious: Yes (Other)
  Sender: FDA-Public Use
  Company Number: BR-PFIZER INC-PV202300208452

PATIENT
  Age: 82 Year
  Sex: Female
  Weight: 64 kg

DRUGS (10)
  1. AROMASIN [Suspect]
     Active Substance: EXEMESTANE
     Indication: Breast cancer
     Dosage: 1 DF, DAILY
     Dates: start: 20230927
  2. VENLAFAXINE HYDROCHLORIDE [Concomitant]
     Active Substance: VENLAFAXINE HYDROCHLORIDE
     Indication: Depression
  3. VENLAFAXINE HYDROCHLORIDE [Concomitant]
     Active Substance: VENLAFAXINE HYDROCHLORIDE
     Indication: Anxiety
  4. RIVOTRIL [Concomitant]
     Active Substance: CLONAZEPAM
     Indication: Anxiety
     Dosage: 1 MG, DAILY
  5. RIVOTRIL [Concomitant]
     Active Substance: CLONAZEPAM
     Indication: Depression
  6. FISH OIL [Concomitant]
     Active Substance: FISH OIL
     Indication: Vitamin supplementation
  7. TRIADE [Concomitant]
     Indication: Vitamin supplementation
  8. PICNOGENOL [Concomitant]
  9. INDAPEN [INDAPAMIDE] [Concomitant]
     Indication: Hypertension
     Dosage: 1 DF, DAILY
  10. ROSUVASTATIN [Concomitant]
     Active Substance: ROSUVASTATIN
     Indication: Blood cholesterol abnormal

REACTIONS (7)
  - Pneumonia [Unknown]
  - Dizziness [Unknown]
  - Fall [Unknown]
  - Rib fracture [Unknown]
  - Spinal column injury [Unknown]
  - Sciatic nerve injury [Unknown]
  - Sinusitis [Unknown]

NARRATIVE: CASE EVENT DATE: 20231101
